FAERS Safety Report 22351292 (Version 7)
Quarter: 2024Q1

REPORT INFORMATION
  Report Type: Spontaneous
  Country: US (occurrence: US)
  Receive Date: 20230522
  Receipt Date: 20240122
  Transmission Date: 20240410
  Serious: No
  Sender: FDA-Public Use
  Company Number: US-Stemline Therapeutics, Inc.-2023ST000585

PATIENT
  Age: 70 Year
  Sex: Female
  Weight: 67.192 kg

DRUGS (1)
  1. ORSERDU [Suspect]
     Active Substance: ELACESTRANT
     Indication: Breast cancer stage IV
     Dosage: 345MG ONCE A DAY BY MOUTH
     Route: 048
     Dates: start: 20230403, end: 20230928

REACTIONS (19)
  - Decreased activity [Not Recovered/Not Resolved]
  - Musculoskeletal stiffness [Not Recovered/Not Resolved]
  - Spinal pain [Not Recovered/Not Resolved]
  - Weight increased [Not Recovered/Not Resolved]
  - Product dose omission issue [Recovered/Resolved]
  - Therapy cessation [Not Recovered/Not Resolved]
  - Lipids increased [Not Recovered/Not Resolved]
  - Bone pain [Not Recovered/Not Resolved]
  - Carbohydrate antigen 15-3 increased [Unknown]
  - Carbohydrate antigen 27.29 increased [Unknown]
  - Metastatic neoplasm [Not Recovered/Not Resolved]
  - Drug ineffective [Unknown]
  - Arthralgia [Not Recovered/Not Resolved]
  - Pain in extremity [Not Recovered/Not Resolved]
  - Musculoskeletal chest pain [Not Recovered/Not Resolved]
  - Back pain [Not Recovered/Not Resolved]
  - Myalgia [Not Recovered/Not Resolved]
  - Nausea [Recovering/Resolving]
  - Insomnia [Not Recovered/Not Resolved]

NARRATIVE: CASE EVENT DATE: 20230928
